FAERS Safety Report 11857699 (Version 1)
Quarter: 2015Q4

REPORT INFORMATION
  Report Type: Spontaneous
  Country: None (occurrence: None)
  Receive Date: 20151221
  Receipt Date: 20151221
  Transmission Date: 20160305
  Serious: Yes (Life-Threatening, Hospitalization, Disabling)
  Sender: FDA-Public Use
  Company Number: None

PATIENT
  Age: 33 Year
  Sex: Male
  Weight: 108 kg

DRUGS (1)
  1. PALIPERIDONE PALMITATE XEPLION 150MG [Suspect]
     Active Substance: PALIPERIDONE PALMITATE
     Indication: SCHIZOAFFECTIVE DISORDER BIPOLAR TYPE
     Route: 030

REACTIONS (5)
  - Epistaxis [None]
  - Disturbance in attention [None]
  - Nasopharyngitis [None]
  - Choking [None]
  - Injection site pain [None]

NARRATIVE: CASE EVENT DATE: 20151216
